FAERS Safety Report 14953677 (Version 2)
Quarter: 2018Q2

REPORT INFORMATION
  Report Type: Spontaneous
  Country: US (occurrence: US)
  Receive Date: 20180530
  Receipt Date: 20180627
  Transmission Date: 20180711
  Serious: No
  Sender: FDA-Public Use
  Company Number: US-GLAXOSMITHKLINE-US2018093464

PATIENT
  Age: 65 Year
  Sex: Female

DRUGS (4)
  1. CALCIUM [Concomitant]
     Active Substance: CALCIUM
  2. MONTELUKAST [Concomitant]
     Active Substance: MONTELUKAST SODIUM
  3. PREDNISONE. [Concomitant]
     Active Substance: PREDNISONE
  4. ADVAIR DISKUS [Suspect]
     Active Substance: FLUTICASONE PROPIONATE\SALMETEROL XINAFOATE
     Indication: ASTHMA
     Dosage: 1 PUFF(S), BID
     Route: 055
     Dates: start: 20180516, end: 20180521

REACTIONS (3)
  - Aptyalism [Recovering/Resolving]
  - Oral mucosal blistering [Recovering/Resolving]
  - Dry mouth [Recovering/Resolving]

NARRATIVE: CASE EVENT DATE: 20180519
